FAERS Safety Report 5127984-0 (Version None)
Quarter: 2006Q4

REPORT INFORMATION
  Report Type: 
  Country: None (occurrence: None)
  Receive Date: 20061010
  Receipt Date: 20061002
  Transmission Date: 20070319
  Serious: Yes (Death, Other)
  Sender: FDA-Public Use
  Company Number: 2006119886

PATIENT
  Age: 62 Year
  Sex: Female

DRUGS (7)
  1. DOXORUBICIN HCL [Suspect]
     Indication: CHRONIC LYMPHOCYTIC LEUKAEMIA
     Dates: start: 20030901, end: 20040201
  2. PREDNISONE TAB [Suspect]
     Indication: CHRONIC LYMPHOCYTIC LEUKAEMIA
     Dates: start: 20030901, end: 20040201
  3. CYCLOPHOPHAMIDE (CYCLOPHOSPHAMIDE) [Suspect]
     Indication: CHRONIC LYMPHOCYTIC LEUKAEMIA
     Dates: start: 20030901, end: 20040201
  4. RITUXIMAB (RITUXIMAB) [Suspect]
     Indication: CHRONIC LYMPHOCYTIC LEUKAEMIA
     Dates: start: 20030901, end: 20040201
  5. VINCRISTINE [Suspect]
     Indication: CHRONIC LYMPHOCYTIC LEUKAEMIA
     Dates: start: 20030901, end: 20040201
  6. CHLORAMBUCIL (CHLORAMBUCIL) [Concomitant]
  7. FLUDARABINE PHOSPHATE [Concomitant]

REACTIONS (5)
  - BRAIN SCAN ABNORMAL [None]
  - DEMYELINATION [None]
  - JC VIRUS INFECTION [None]
  - MUSCLE TWITCHING [None]
  - PROGRESSIVE MULTIFOCAL LEUKOENCEPHALOPATHY [None]
